FAERS Safety Report 11052846 (Version 1)
Quarter: 2015Q2

REPORT INFORMATION
  Report Type: Spontaneous
  Country: US (occurrence: None)
  Receive Date: 20150420
  Receipt Date: 20150420
  Transmission Date: 20150821
  Serious: No
  Sender: FDA-Public Use
  Company Number: None

PATIENT
  Age: 82 Year
  Sex: Male
  Weight: 72.58 kg

DRUGS (5)
  1. COLCHICINE. [Concomitant]
     Active Substance: COLCHICINE
  2. FENOFIBRATE. [Concomitant]
     Active Substance: FENOFIBRATE
  3. TRIAMTERENE AND HYDROCHLOROTHIAZIDE [Concomitant]
     Active Substance: HYDROCHLOROTHIAZIDE\TRIAMTERENE
  4. VALSARTAN 80MG [Suspect]
     Active Substance: VALSARTAN
     Indication: HYPERTENSION
     Dosage: 90  QD  ORAL
     Route: 048
     Dates: start: 20150415, end: 20150416
  5. METFORMIN [Concomitant]
     Active Substance: METFORMIN HYDROCHLORIDE

REACTIONS (6)
  - Lacrimation increased [None]
  - Hot flush [None]
  - Ageusia [None]
  - Cough [None]
  - Product substitution issue [None]
  - Oropharyngeal pain [None]

NARRATIVE: CASE EVENT DATE: 20150414
